FAERS Safety Report 4752321-0 (Version None)
Quarter: 2005Q3

REPORT INFORMATION
  Report Type: 
  Country: None (occurrence: None)
  Receive Date: 20050825
  Receipt Date: 20041203
  Transmission Date: 20060218
  Serious: Yes (Other)
  Sender: FDA-Public Use
  Company Number: GB-GLAXOSMITHKLINE-B0359584A

PATIENT
  Sex: Female

DRUGS (5)
  1. SEROXAT [Suspect]
     Route: 065
  2. IBUPROFEN [Suspect]
     Route: 065
  3. PARACETAMOL [Suspect]
     Route: 065
  4. ALCOHOL [Suspect]
     Route: 065
  5. FLUOXETINE [Concomitant]
     Dosage: 40MG PER DAY

REACTIONS (3)
  - COMPLETED SUICIDE [None]
  - ILL-DEFINED DISORDER [None]
  - OVERDOSE [None]
